FAERS Safety Report 25722433 (Version 1)
Quarter: 2025Q3

REPORT INFORMATION
  Report Type: Spontaneous
  Country: CN (occurrence: CN)
  Receive Date: 20250825
  Receipt Date: 20250825
  Transmission Date: 20251021
  Serious: Yes (Other)
  Sender: ACCORD
  Company Number: None

PATIENT
  Age: 57 Year
  Sex: Male
  Weight: 62 kg

DRUGS (3)
  1. ETOPOSIDE [Suspect]
     Active Substance: ETOPOSIDE
     Indication: Bronchial carcinoma
     Dosage: 70 MILLIGRAM, QD, IV DRIP
     Route: 042
     Dates: start: 20250722, end: 20250722
  2. SERPLULIMAB [Suspect]
     Active Substance: SERPLULIMAB
     Indication: Bronchial carcinoma
     Dosage: 279 MILLIGRAM, QD, IV DRIP
     Route: 042
     Dates: start: 20250718, end: 20250718
  3. NEDAPLATIN [Suspect]
     Active Substance: NEDAPLATIN
     Indication: Bronchial carcinoma
     Dosage: 120 MILLIGRAM, QD, IV DRIP
     Route: 042
     Dates: start: 20250719, end: 20250719

REACTIONS (6)
  - Aspartate aminotransferase increased [Recovering/Resolving]
  - Alanine aminotransferase increased [Recovering/Resolving]
  - Gamma-glutamyltransferase increased [Recovering/Resolving]
  - Nausea [Recovering/Resolving]
  - Vomiting [Recovering/Resolving]
  - Dizziness [Recovering/Resolving]

NARRATIVE: CASE EVENT DATE: 20250719
